FAERS Safety Report 13168242 (Version 2)
Quarter: 2017Q1

REPORT INFORMATION
  Report Type: Spontaneous
  Country: CA (occurrence: CA)
  Receive Date: 20170131
  Receipt Date: 20170222
  Transmission Date: 20170428
  Serious: Yes (Death)
  Sender: FDA-Public Use
  Company Number: CA-SA-2017SA014196

PATIENT
  Age: 85 Year
  Sex: Male

DRUGS (13)
  1. PROPAFENONE. [Concomitant]
     Active Substance: PROPAFENONE
     Route: 048
  2. SPIRONOLACTONE. [Concomitant]
     Active Substance: SPIRONOLACTONE
  3. TAMSULOSIN HYDROCHLORIDE. [Concomitant]
     Active Substance: TAMSULOSIN HYDROCHLORIDE
  4. MEXILETINE [Concomitant]
     Active Substance: MEXILETINE
  5. ATORVASTATIN [Concomitant]
     Active Substance: ATORVASTATIN
  6. DRONEDARONE [Suspect]
     Active Substance: DRONEDARONE
     Indication: VENTRICULAR TACHYCARDIA
     Dosage: 3 DOSES
     Route: 048
  7. AMIODARONE [Concomitant]
     Active Substance: AMIODARONE
     Indication: VENTRICULAR TACHYCARDIA
     Route: 048
  8. DUTASTERIDE. [Concomitant]
     Active Substance: DUTASTERIDE
  9. PERINDOPRIL [Concomitant]
     Active Substance: PERINDOPRIL
  10. SOTALOL. [Concomitant]
     Active Substance: SOTALOL
     Indication: VENTRICULAR TACHYCARDIA
     Route: 048
  11. ACETAMINOPHEN. [Concomitant]
     Active Substance: ACETAMINOPHEN
     Dosage: 650 MG EVERY 4-6 HOUR PRN/WEEK
  12. CARVEDILOL. [Concomitant]
     Active Substance: CARVEDILOL
  13. LASIX [Concomitant]
     Active Substance: FUROSEMIDE

REACTIONS (12)
  - Drug-induced liver injury [Fatal]
  - Renal failure [Fatal]
  - Multiple organ dysfunction syndrome [Fatal]
  - Nausea [Fatal]
  - Renal impairment [Fatal]
  - Hepatic failure [Fatal]
  - Blood creatinine increased [Fatal]
  - Glomerular filtration rate decreased [Fatal]
  - Condition aggravated [Fatal]
  - Vomiting [Fatal]
  - Alanine aminotransferase increased [Fatal]
  - Shock [Fatal]
